FAERS Safety Report 8276539-8 (Version None)
Quarter: 2012Q2

REPORT INFORMATION
  Report Type: 
  Country: None (occurrence: None)
  Receive Date: 20120406
  Receipt Date: 20120329
  Transmission Date: 20120825
  Serious: Yes (Hospitalization)
  Sender: FDA-Public Use
  Company Number: 2012SP017262

PATIENT
  Age: 37 Year
  Sex: Female

DRUGS (2)
  1. PUREGON (FOLLITROPIN BETA /01348901/) [Suspect]
     Indication: IN VITRO FERTILISATION
     Dosage: SC
     Route: 058
     Dates: start: 20100201
  2. CHORIONIC GONADOTROPIN [Suspect]
     Indication: IN VITRO FERTILISATION
     Dosage: SC
     Route: 058

REACTIONS (1)
  - BREAST CANCER FEMALE [None]
